FAERS Safety Report 4899297-3 (Version None)
Quarter: 2006Q1

REPORT INFORMATION
  Report Type: 
  Country: None (occurrence: None)
  Receive Date: 20060106
  Receipt Date: 20051010
  Transmission Date: 20060701
  Serious: Yes (Other)
  Sender: FDA-Public Use
  Company Number: 200512258BWH

PATIENT
  Age: 35 Year
  Sex: Male

DRUGS (1)
  1. LEVITRA [Suspect]
     Indication: ERECTILE DYSFUNCTION
     Dosage: 20 MG, QD, ORAL
     Route: 048
     Dates: start: 20050926

REACTIONS (2)
  - EJACULATION FAILURE [None]
  - ERECTION INCREASED [None]
